FAERS Safety Report 8850830 (Version 1)
Quarter: 2012Q4

REPORT INFORMATION
  Report Type: 
  Country: US (occurrence: US)
  Receive Date: 20121019
  Receipt Date: 20121019
  Transmission Date: 20130627
  Serious: No
  Sender: FDA-Public Use
  Company Number: US-PFIZER INC-2012260455

PATIENT

DRUGS (2)
  1. NEURONTIN [Suspect]
     Indication: BACK PAIN
     Dosage: UNK
  2. NEURONTIN [Suspect]
     Indication: TREMOR

REACTIONS (1)
  - Drug ineffective [Unknown]
